FAERS Safety Report 7928093-5 (Version None)
Quarter: 2011Q4

REPORT INFORMATION
  Report Type: 
  Country: None (occurrence: None)
  Receive Date: 20111118
  Receipt Date: 20111109
  Transmission Date: 20120403
  Serious: Yes (Other)
  Sender: FDA-Public Use
  Company Number: JP-GLAXOSMITHKLINE-B0760595A

PATIENT
  Sex: Female

DRUGS (1)
  1. PAXIL [Suspect]
     Indication: ADJUSTMENT DISORDER
     Dosage: 10MG PER DAY
     Route: 048
     Dates: start: 20070101, end: 20070101

REACTIONS (4)
  - SUICIDAL IDEATION [None]
  - ACTIVATION SYNDROME [None]
  - ANXIETY [None]
  - IRRITABILITY [None]
